FAERS Safety Report 6967726-7 (Version None)
Quarter: 2010Q3

REPORT INFORMATION
  Report Type: 
  Country: None (occurrence: None)
  Receive Date: 20100907
  Receipt Date: 20100827
  Transmission Date: 20110219
  Serious: Yes (Death, Other)
  Sender: FDA-Public Use
  Company Number: US-BAYER-201038050GPV

PATIENT

DRUGS (3)
  1. ASPIRIN [Suspect]
     Indication: ANTICOAGULANT THERAPY
     Dosage: LOW-DOSE OR INTERMITTENT
  2. WARFARIN SODIUM [Suspect]
     Indication: ANTICOAGULANT THERAPY
  3. HEPARIN [Suspect]
     Indication: ANTICOAGULANT THERAPY
     Route: 042

REACTIONS (1)
  - HAEMORRHAGIC STROKE [None]
